FAERS Safety Report 16288114 (Version 2)
Quarter: 2019Q2

REPORT INFORMATION
  Report Type: Spontaneous
  Country: CA (occurrence: CA)
  Receive Date: 20190508
  Receipt Date: 20190521
  Transmission Date: 20190711
  Serious: No
  Sender: FDA-Public Use
  Company Number: CA-SHIRE-CA201911665

PATIENT

DRUGS (2)
  1. ETOPOSIDE. [Concomitant]
     Active Substance: ETOPOSIDE
     Indication: PRODUCT USED FOR UNKNOWN INDICATION
     Route: 065
  2. GAMMAGARD LIQUID [Suspect]
     Active Substance: HUMAN IMMUNOGLOBULIN G
     Indication: SECONDARY IMMUNODEFICIENCY
     Dosage: 30 GRAM, EVERY 4 WK
     Route: 042
     Dates: start: 20190401

REACTIONS (4)
  - Back pain [Recovered/Resolved]
  - Chills [Recovered/Resolved]
  - Body temperature abnormal [Unknown]
  - Wrong technique in product usage process [Recovered/Resolved]
